FAERS Safety Report 22721376 (Version 2)
Quarter: 2024Q3

REPORT INFORMATION
  Report Type: Spontaneous
  Country: US (occurrence: US)
  Receive Date: 20230719
  Receipt Date: 20240723
  Transmission Date: 20241016
  Serious: No
  Sender: OTSUKA
  Company Number: US-OTSUKA-2023_003728

PATIENT
  Age: 5 Decade
  Sex: Female

DRUGS (4)
  1. REXULTI [Suspect]
     Active Substance: BREXPIPRAZOLE
     Indication: Major depression
     Dosage: UNK
     Route: 065
  2. REXULTI [Suspect]
     Active Substance: BREXPIPRAZOLE
     Indication: Adjuvant therapy
  3. REXULTI [Suspect]
     Active Substance: BREXPIPRAZOLE
     Indication: Post-traumatic stress disorder
  4. REXULTI [Suspect]
     Active Substance: BREXPIPRAZOLE
     Indication: Bipolar disorder

REACTIONS (3)
  - Obsessive-compulsive disorder [Unknown]
  - Impulsive behaviour [Unknown]
  - Product use in unapproved indication [Unknown]
